FAERS Safety Report 11924940 (Version 2)
Quarter: 2016Q1

REPORT INFORMATION
  Report Type: Spontaneous
  Country: US (occurrence: US)
  Receive Date: 20160118
  Receipt Date: 20160216
  Transmission Date: 20160526
  Serious: No
  Sender: FDA-Public Use
  Company Number: US-GLAXOSMITHKLINE-US2016004148

PATIENT
  Age: 61 Year
  Sex: Female

DRUGS (2)
  1. ABREVA [Suspect]
     Active Substance: DOCOSANOL
     Indication: ORAL HERPES
     Dosage: UNK
     Dates: start: 2014
  2. ABREVA [Suspect]
     Active Substance: DOCOSANOL
     Dosage: UNK
     Dates: start: 201511

REACTIONS (10)
  - Condition aggravated [Recovered/Resolved]
  - Application site discharge [Recovered/Resolved]
  - Drug ineffective [Unknown]
  - Impaired healing [Recovered/Resolved]
  - Skin hypertrophy [Recovered/Resolved]
  - Application site haemorrhage [Recovered/Resolved]
  - Oral herpes [Recovered/Resolved]
  - Scab [Recovered/Resolved]
  - Application site reaction [Recovered/Resolved]
  - Product quality issue [Unknown]
